FAERS Safety Report 10405988 (Version 1)
Quarter: 2014Q3

REPORT INFORMATION
  Report Type: Spontaneous
  Country: JP (occurrence: JP)
  Receive Date: 20140825
  Receipt Date: 20140825
  Transmission Date: 20150326
  Serious: Yes (Life-Threatening)
  Sender: FDA-Public Use
  Company Number: JP-ASTRAZENECA-2014SE62588

PATIENT
  Age: 56 Year
  Sex: Female
  Weight: 60 kg

DRUGS (11)
  1. DIPRIVAN [Suspect]
     Active Substance: PROPOFOL
     Indication: INDUCTION AND MAINTENANCE OF ANAESTHESIA
     Dosage: FOR MAINTENANCE: TARGETED BLOOD CONCENTRATION: 2 - 2.5 MCG/ML
     Route: 042
  2. SODIUM VALPROATE [Concomitant]
     Active Substance: VALPROATE SODIUM
     Route: 065
  3. FAMOTIDINE. [Concomitant]
     Active Substance: FAMOTIDINE
     Route: 042
  4. REMIFENTANIL HYDROCHLORIDE [Concomitant]
     Active Substance: REMIFENTANIL HYDROCHLORIDE
     Indication: INDUCTION AND MAINTENANCE OF ANAESTHESIA
     Dosage: FOR MAINTENANCE: 0.2 - 0.5 MCG/KG/MIN
     Route: 042
  5. ROCURONIUM BROMIDE. [Concomitant]
     Active Substance: ROCURONIUM BROMIDE
     Route: 042
  6. GLYCERIN. [Concomitant]
     Active Substance: GLYCERIN
     Indication: BRAIN NEOPLASM
     Route: 065
  7. FENTANYL. [Concomitant]
     Active Substance: FENTANYL
     Route: 042
  8. METOCLOPRAMIDE. [Concomitant]
     Active Substance: METOCLOPRAMIDE
     Route: 042
  9. DIPRIVAN [Suspect]
     Active Substance: PROPOFOL
     Indication: INDUCTION AND MAINTENANCE OF ANAESTHESIA
     Dosage: FOR INDUCTION: TARGETED BLOOD CONCENTRATION: TAPERED FROM 4 MCG/ML TO 1.8 MCG/ML
     Route: 042
  10. BETAMETHASONE [Concomitant]
     Active Substance: BETAMETHASONE
     Indication: BRAIN NEOPLASM
     Route: 065
  11. REMIFENTANIL HYDROCHLORIDE [Concomitant]
     Active Substance: REMIFENTANIL HYDROCHLORIDE
     Indication: INDUCTION AND MAINTENANCE OF ANAESTHESIA
     Dosage: FOR INDUCTION: 0.5 MCG/KG/MIN
     Route: 042

REACTIONS (1)
  - Respiratory arrest [Recovered/Resolved]
